FAERS Safety Report 18080630 (Version 1)
Quarter: 2020Q3

REPORT INFORMATION
  Report Type: Spontaneous
  Country: ES (occurrence: ES)
  Receive Date: 20200728
  Receipt Date: 20200728
  Transmission Date: 20201103
  Serious: Yes (Hospitalization, Other)
  Sender: FDA-Public Use
  Company Number: ES-PFIZER INC-2019477451

PATIENT
  Age: 53 Year
  Sex: Female
  Weight: 62 kg

DRUGS (42)
  1. GEMCITABINE HYDROCHLORIDE. [Suspect]
     Active Substance: GEMCITABINE HYDROCHLORIDE
     Dosage: 1000 MG/M2
     Route: 041
     Dates: start: 20190916, end: 20190916
  2. GEMCITABINE HYDROCHLORIDE. [Suspect]
     Active Substance: GEMCITABINE HYDROCHLORIDE
     Dosage: 1000 MG/M2
     Route: 041
     Dates: start: 20200226
  3. MEDI 9447 [Suspect]
     Active Substance: OLECLUMAB
     Dosage: 3000 MG
     Route: 042
     Dates: start: 20190801, end: 20190801
  4. MEDI 9447 [Suspect]
     Active Substance: OLECLUMAB
     Dosage: 3000 MG
     Route: 042
     Dates: start: 20190828, end: 20190828
  5. ABRAXANE [Suspect]
     Active Substance: PACLITAXEL
     Dosage: 125 MG/M2
     Route: 041
     Dates: start: 20190909, end: 20190909
  6. GEMCITABINE HYDROCHLORIDE. [Suspect]
     Active Substance: GEMCITABINE HYDROCHLORIDE
     Indication: PANCREATIC CARCINOMA METASTATIC
     Dosage: 1000 MG/M2
     Route: 041
     Dates: start: 20190715, end: 20190715
  7. GEMCITABINE HYDROCHLORIDE. [Suspect]
     Active Substance: GEMCITABINE HYDROCHLORIDE
     Dosage: 1000 MG/M2
     Route: 041
     Dates: start: 20190801, end: 20190801
  8. GEMCITABINE HYDROCHLORIDE. [Suspect]
     Active Substance: GEMCITABINE HYDROCHLORIDE
     Dosage: 1000 MG/M2
     Route: 041
     Dates: start: 20190909, end: 20190909
  9. GEMCITABINE HYDROCHLORIDE. [Suspect]
     Active Substance: GEMCITABINE HYDROCHLORIDE
     Dosage: 1000 MG/M2
     Route: 041
     Dates: start: 20200212, end: 20200212
  10. MEDI 9447 [Suspect]
     Active Substance: OLECLUMAB
     Dosage: 3000 MG
     Route: 042
     Dates: start: 20191202, end: 20191202
  11. ABRAXANE [Suspect]
     Active Substance: PACLITAXEL
     Indication: PANCREATIC CARCINOMA METASTATIC
     Dosage: 125 MG/M2
     Route: 041
     Dates: start: 20190715, end: 20190715
  12. ABRAXANE [Suspect]
     Active Substance: PACLITAXEL
     Dosage: 125 MG/M2
     Route: 041
     Dates: start: 20190723, end: 20190723
  13. ABRAXANE [Suspect]
     Active Substance: PACLITAXEL
     Dosage: 125 MG/M2
     Route: 041
     Dates: start: 20190828, end: 20190828
  14. ABRAXANE [Suspect]
     Active Substance: PACLITAXEL
     Dosage: 125 MG/M2
     Route: 041
     Dates: start: 20191104, end: 20191104
  15. ABRAXANE [Suspect]
     Active Substance: PACLITAXEL
     Dosage: 100 MG/M2
     Route: 041
     Dates: start: 20191111, end: 20191111
  16. ABRAXANE [Suspect]
     Active Substance: PACLITAXEL
     Dosage: 75 MG/M2
     Route: 041
     Dates: start: 20191202, end: 20191202
  17. GEMCITABINE HYDROCHLORIDE. [Suspect]
     Active Substance: GEMCITABINE HYDROCHLORIDE
     Dosage: 1000 MG/M2
     Route: 041
     Dates: start: 20190828, end: 20190828
  18. GEMCITABINE HYDROCHLORIDE. [Suspect]
     Active Substance: GEMCITABINE HYDROCHLORIDE
     Dosage: 1000 MG/M2
     Route: 041
     Dates: start: 20190923, end: 20190923
  19. GEMCITABINE HYDROCHLORIDE. [Suspect]
     Active Substance: GEMCITABINE HYDROCHLORIDE
     Dosage: 1000 MG/M2
     Route: 041
     Dates: start: 20191104, end: 20191104
  20. MEDI 9447 [Suspect]
     Active Substance: OLECLUMAB
     Dosage: 3000 MG
     Route: 042
     Dates: start: 20191230, end: 20191230
  21. GEMCITABINE HYDROCHLORIDE. [Suspect]
     Active Substance: GEMCITABINE HYDROCHLORIDE
     Dosage: 1000 MG/M2
     Route: 041
     Dates: start: 20190723, end: 20190723
  22. GEMCITABINE HYDROCHLORIDE. [Suspect]
     Active Substance: GEMCITABINE HYDROCHLORIDE
     Dosage: 1000 MG/M2
     Route: 041
     Dates: start: 20191007, end: 20191007
  23. MEDI 9447 [Suspect]
     Active Substance: OLECLUMAB
     Dosage: 3000 MG
     Route: 042
     Dates: start: 20190909, end: 20190909
  24. ABRAXANE [Suspect]
     Active Substance: PACLITAXEL
     Dosage: 125 MG/M2
     Route: 041
     Dates: start: 20190814, end: 20190814
  25. ABRAXANE [Suspect]
     Active Substance: PACLITAXEL
     Dosage: 125 MG/M2
     Route: 041
     Dates: start: 20191007, end: 20191007
  26. GEMCITABINE HYDROCHLORIDE. [Suspect]
     Active Substance: GEMCITABINE HYDROCHLORIDE
     Dosage: 1000 MG/M2
     Route: 041
     Dates: start: 20190814, end: 20190814
  27. GEMCITABINE HYDROCHLORIDE. [Suspect]
     Active Substance: GEMCITABINE HYDROCHLORIDE
     Dosage: 1000 MG/M2
     Route: 041
     Dates: start: 20190821, end: 20190821
  28. MEDI 9447 [Suspect]
     Active Substance: OLECLUMAB
     Dosage: 3000 MG
     Route: 042
     Dates: start: 20191007, end: 20191007
  29. ABRAXANE [Suspect]
     Active Substance: PACLITAXEL
     Dosage: 125 MG/M2
     Route: 041
     Dates: start: 20190801, end: 20190801
  30. ABRAXANE [Suspect]
     Active Substance: PACLITAXEL
     Dosage: 125 MG/M2
     Route: 041
     Dates: start: 20190916, end: 20190916
  31. ABRAXANE [Suspect]
     Active Substance: PACLITAXEL
     Dosage: 75 MG/M2
     Route: 041
     Dates: start: 20191118, end: 20191118
  32. ABRAXANE [Suspect]
     Active Substance: PACLITAXEL
     Dosage: 125 MG/M2
     Route: 041
     Dates: start: 20191014, end: 20191014
  33. ABRAXANE [Suspect]
     Active Substance: PACLITAXEL
     Dosage: 125 MG/M2
     Route: 041
     Dates: start: 20191021, end: 20191021
  34. ABRAXANE [Suspect]
     Active Substance: PACLITAXEL
     Dosage: 75 MG/M2
     Route: 041
     Dates: start: 20200226
  35. MEDI 9447 [Suspect]
     Active Substance: OLECLUMAB
     Indication: PANCREATIC CARCINOMA METASTATIC
     Dosage: 3000 MG
     Route: 042
     Dates: start: 20190715, end: 20190715
  36. MEDI 9447 [Suspect]
     Active Substance: OLECLUMAB
     Dosage: 3000 MG
     Route: 042
     Dates: start: 20191104, end: 20191104
  37. ABRAXANE [Suspect]
     Active Substance: PACLITAXEL
     Dosage: 125 MG/M2
     Route: 041
     Dates: start: 20190923, end: 20190923
  38. MEDI 9447 [Suspect]
     Active Substance: OLECLUMAB
     Dosage: 3000 MG
     Route: 042
     Dates: start: 20190814, end: 20190814
  39. MEDI 9447 [Suspect]
     Active Substance: OLECLUMAB
     Dosage: 3000 MG
     Route: 042
     Dates: start: 20200226
  40. ABRAXANE [Suspect]
     Active Substance: PACLITAXEL
     Dosage: 125 MG/M2
     Route: 041
     Dates: start: 20190821, end: 20190821
  41. ABRAXANE [Suspect]
     Active Substance: PACLITAXEL
     Dosage: 75 MG/M2
     Route: 041
     Dates: start: 20191216, end: 20191216
  42. ABRAXANE [Suspect]
     Active Substance: PACLITAXEL
     Dosage: 75 MG/M2
     Route: 041
     Dates: start: 20191230, end: 20191230

REACTIONS (4)
  - White blood cell count decreased [Unknown]
  - Neutrophil count decreased [Unknown]
  - Anaemia [Recovered/Resolved]
  - Lymphocyte count decreased [Unknown]

NARRATIVE: CASE EVENT DATE: 20190923
